FAERS Safety Report 5493231-3 (Version None)
Quarter: 2007Q4

REPORT INFORMATION
  Report Type: 
  Country: None (occurrence: None)
  Receive Date: 20071023
  Receipt Date: 20071010
  Transmission Date: 20080405
  Serious: Yes (Other)
  Sender: FDA-Public Use
  Company Number: US-AMGEN-STX242198

PATIENT
  Sex: Male
  Weight: 158.9 kg

DRUGS (5)
  1. ENBREL [Suspect]
     Indication: PSORIASIS
     Route: 065
     Dates: start: 20041201, end: 20050901
  2. ENBREL [Suspect]
     Indication: PSORIATIC ARTHROPATHY
  3. HUMIRA [Concomitant]
     Indication: PSORIASIS
     Dates: start: 20060201, end: 20070501
  4. HUMIRA [Concomitant]
     Indication: PSORIATIC ARTHROPATHY
  5. ELIDEL [Concomitant]
     Route: 061

REACTIONS (19)
  - BACK PAIN [None]
  - BLOOD PRESSURE INCREASED [None]
  - FALL [None]
  - FATIGUE [None]
  - FEELING COLD [None]
  - FRUSTRATION [None]
  - GAIT DISTURBANCE [None]
  - HEADACHE [None]
  - HYPOAESTHESIA [None]
  - INSOMNIA [None]
  - MULTIPLE SCLEROSIS [None]
  - MUSCULAR WEAKNESS [None]
  - NAUSEA [None]
  - PAIN [None]
  - PARAESTHESIA [None]
  - PSORIASIS [None]
  - SENSORY LOSS [None]
  - VISUAL DISTURBANCE [None]
  - VOMITING [None]
